FAERS Safety Report 23956929 (Version 1)
Quarter: 2024Q2

REPORT INFORMATION
  Report Type: Spontaneous
  Country: JP (occurrence: JP)
  Receive Date: 20240610
  Receipt Date: 20240610
  Transmission Date: 20240716
  Serious: Yes (Hospitalization, Other)
  Sender: FDA-Public Use
  Company Number: JP-HBP-2024JP030892

PATIENT
  Age: 57 Year
  Sex: Male

DRUGS (12)
  1. PALONOSETRON HYDROCHLORIDE [Suspect]
     Active Substance: PALONOSETRON HYDROCHLORIDE
     Indication: Prophylaxis of nausea and vomiting
     Dosage: 0.75 MG, UNKNOWN
     Route: 041
     Dates: start: 20240418, end: 20240418
  2. PALONOSETRON HYDROCHLORIDE [Suspect]
     Active Substance: PALONOSETRON HYDROCHLORIDE
     Dosage: 0.75 MG, UNKNOWN
     Route: 041
     Dates: start: 20240524, end: 20240524
  3. FOSNETUPITANT CHLORIDE HYDROCHLORIDE [Suspect]
     Active Substance: FOSNETUPITANT CHLORIDE HYDROCHLORIDE
     Indication: Prophylaxis of nausea and vomiting
     Dosage: 235 MILLIGRAM, UNKNOWN
     Route: 041
     Dates: start: 20240524, end: 20240524
  4. CYCLOPHOSPHAMIDE\DOXORUBICIN\VINCRISTINE [Suspect]
     Active Substance: CYCLOPHOSPHAMIDE\DOXORUBICIN\VINCRISTINE
     Indication: Diffuse large B-cell lymphoma
     Dosage: UNK, UNKNOWN
     Dates: start: 20240418, end: 20240524
  5. CYCLOPHOSPHAMIDE\DOXORUBICIN\VINCRISTINE [Suspect]
     Active Substance: CYCLOPHOSPHAMIDE\DOXORUBICIN\VINCRISTINE
     Indication: Follicular lymphoma
  6. PREDNISOLONE [Suspect]
     Active Substance: PREDNISOLONE
     Indication: Diffuse large B-cell lymphoma
     Dosage: UNK, UNKNOWN
     Route: 048
     Dates: start: 20240418, end: 20240524
  7. PREDNISOLONE [Suspect]
     Active Substance: PREDNISOLONE
     Indication: Follicular lymphoma
  8. PREDNISOLONE SODIUM SUCCINATE [Suspect]
     Active Substance: PREDNISOLONE SODIUM SUCCINATE
     Indication: Diffuse large B-cell lymphoma
     Dosage: UNK, UNKNOWN
     Route: 041
     Dates: start: 20240524, end: 20240524
  9. PREDNISOLONE SODIUM SUCCINATE [Suspect]
     Active Substance: PREDNISOLONE SODIUM SUCCINATE
     Indication: Follicular lymphoma
  10. LANSOPRAZOLE [Concomitant]
     Active Substance: LANSOPRAZOLE
     Indication: Product used for unknown indication
     Dosage: UNK, UNKNOWN
     Route: 048
     Dates: start: 20240418, end: 20240524
  11. SULFAMETHOXAZOLE\TRIMETHOPRIM [Concomitant]
     Active Substance: SULFAMETHOXAZOLE\TRIMETHOPRIM
     Indication: Product used for unknown indication
     Dosage: UNK, UNKNOWN
     Route: 048
     Dates: start: 20240423, end: 20240524
  12. URSODIOL [Concomitant]
     Active Substance: URSODIOL
     Indication: Product used for unknown indication
     Dosage: UNK, UNKNOWN
     Route: 048
     Dates: start: 20240508, end: 20240524

REACTIONS (5)
  - Atrial fibrillation [Unknown]
  - Cardiac arrest [Recovered/Resolved]
  - Anaphylactic shock [Recovered/Resolved]
  - Nausea [Unknown]
  - Vomiting [Unknown]

NARRATIVE: CASE EVENT DATE: 20240418
